FAERS Safety Report 8967097 (Version 1)
Quarter: 2012Q4

REPORT INFORMATION
  Report Type: 
  Country: US (occurrence: US)
  Receive Date: 20121217
  Receipt Date: 20121217
  Transmission Date: 20130627
  Serious: Yes (Other)
  Sender: FDA-Public Use
  Company Number: US-ROXANE LABORATORIES, INC.-2012-RO-02565RO

PATIENT
  Age: 18 Year
  Sex: Male

DRUGS (3)
  1. ZIDOVUDINE [Suspect]
     Indication: HIV INFECTION
  2. DIDANOSINE [Suspect]
     Indication: HIV INFECTION
  3. LOPINAVIR/RITONAVIR [Suspect]
     Indication: HIV INFECTION

REACTIONS (7)
  - Post streptococcal glomerulonephritis [Unknown]
  - Immune reconstitution inflammatory syndrome [Unknown]
  - Pharyngitis streptococcal [Unknown]
  - Herpes zoster [Unknown]
  - Anaemia [Unknown]
  - Renal failure acute [Unknown]
  - Haematuria [Recovered/Resolved]
